FAERS Safety Report 20731079 (Version 2)
Quarter: 2022Q2

REPORT INFORMATION
  Report Type: Spontaneous
  Country: GB (occurrence: GB)
  Receive Date: 20220420
  Receipt Date: 20220602
  Transmission Date: 20220720
  Serious: Yes (Death, Disabling, Other)
  Sender: FDA-Public Use
  Company Number: GB-MHRA-VAC-202204111517063570-2MYTP

PATIENT
  Age: 20 Year
  Sex: Male

DRUGS (3)
  1. CITALOPRAM [Suspect]
     Active Substance: CITALOPRAM HYDROBROMIDE
     Indication: Product used for unknown indication
     Dosage: UNK
  2. MEASLES-MUMPS-RUBELLA VIRUS VACCINE [Suspect]
     Active Substance: MEASLES-MUMPS-RUBELLA VIRUS VACCINE
     Indication: Measles immunisation
     Dosage: UNK
     Dates: start: 19900620, end: 19900620
  3. CHLORPROMAZINE [Suspect]
     Active Substance: CHLORPROMAZINE
     Indication: Product used for unknown indication
     Dosage: UNK

REACTIONS (2)
  - Brain injury [Fatal]
  - Autism spectrum disorder [Fatal]
